FAERS Safety Report 5424190-7 (Version None)
Quarter: 2007Q3

REPORT INFORMATION
  Report Type: 
  Country: None (occurrence: None)
  Receive Date: 20070823
  Receipt Date: 20070811
  Transmission Date: 20080115
  Serious: Yes (Other)
  Sender: FDA-Public Use
  Company Number: CA-PFIZER INC-2007061619

PATIENT
  Sex: Female
  Weight: 49 kg

DRUGS (4)
  1. CHAMPIX [Suspect]
     Indication: EX-SMOKER
     Route: 048
  2. METFORMIN HCL [Concomitant]
     Route: 048
  3. GLYBURIDE [Concomitant]
     Route: 048
  4. SURMONTIL [Concomitant]
     Route: 048

REACTIONS (3)
  - DECREASED APPETITE [None]
  - DIABETES MELLITUS [None]
  - PAIN IN EXTREMITY [None]
